FAERS Safety Report 5793398-3 (Version None)
Quarter: 2008Q2

REPORT INFORMATION
  Report Type: 
  Country: None (occurrence: None)
  Receive Date: 20080627
  Receipt Date: 20080618
  Transmission Date: 20081010
  Serious: Yes (Other)
  Sender: FDA-Public Use
  Company Number: AR-ASTRAZENECA-2008AC01623

PATIENT
  Age: 11 Month
  Sex: Female

DRUGS (1)
  1. OMEPRAZOLE [Suspect]
     Dosage: 2-3MG/KG/DAY
     Route: 048

REACTIONS (1)
  - GASTRIC MUCOSAL HYPERTROPHY [None]
